FAERS Safety Report 4376229-8 (Version None)
Quarter: 2004Q2

REPORT INFORMATION
  Report Type: 
  Country: None (occurrence: None)
  Receive Date: 20040608
  Receipt Date: 20030404
  Transmission Date: 20050107
  Serious: Yes (Other)
  Sender: FDA-Public Use
  Company Number: 200311123BCC

PATIENT
  Age: 61 Year
  Sex: Female
  Weight: 68.0396 kg

DRUGS (2)
  1. ALEVE [Suspect]
     Indication: ARTHRITIS
     Dosage: 220 MG, TID, ORAL
     Route: 048
     Dates: start: 20030202, end: 20030403
  2. PAXIL [Concomitant]

REACTIONS (1)
  - HAEMOPTYSIS [None]
